FAERS Safety Report 23792472 (Version 1)
Quarter: 2024Q2

REPORT INFORMATION
  Report Type: Spontaneous
  Country: FR (occurrence: FR)
  Receive Date: 20240429
  Receipt Date: 20240429
  Transmission Date: 20240715
  Serious: Yes (Other)
  Sender: FDA-Public Use
  Company Number: FR-AFSSAPS-MA2024000346

PATIENT
  Age: 50 Year
  Sex: Female
  Weight: 60 kg

DRUGS (1)
  1. ROPINIROLE [Suspect]
     Active Substance: ROPINIROLE
     Indication: Parkinson^s disease
     Dosage: 8 MILLIGRAM, ONCE A DAY
     Route: 048
     Dates: start: 20200911, end: 20240306

REACTIONS (3)
  - Abnormal weight gain [Recovering/Resolving]
  - Compulsive shopping [Recovering/Resolving]
  - Gambling disorder [Recovering/Resolving]

NARRATIVE: CASE EVENT DATE: 20230308
